FAERS Safety Report 13003780 (Version 1)
Quarter: 2016Q4

REPORT INFORMATION
  Report Type: Spontaneous
  Country: US (occurrence: US)
  Receive Date: 20161206
  Receipt Date: 20161206
  Transmission Date: 20170207
  Serious: No
  Sender: FDA-Public Use
  Company Number: US-PFIZER INC-3230916

PATIENT
  Age: 32 Year
  Sex: Female
  Weight: 62.2 kg

DRUGS (3)
  1. EPINEPHRINE. [Suspect]
     Active Substance: EPINEPHRINE
     Indication: FEMALE STERILISATION
     Dosage: UNK
     Route: 024
     Dates: start: 20160225
  2. LIDOCAINE HCL [Suspect]
     Active Substance: LIDOCAINE HYDROCHLORIDE
     Indication: FEMALE STERILISATION
     Dosage: UNK
     Route: 024
     Dates: start: 20160225
  3. BUPIVACAINE HCL [Suspect]
     Active Substance: BUPIVACAINE HYDROCHLORIDE
     Indication: FEMALE STERILISATION
     Dosage: UNK
     Route: 037
     Dates: start: 20160225

REACTIONS (1)
  - Drug ineffective [Recovered/Resolved]

NARRATIVE: CASE EVENT DATE: 20160225
